FAERS Safety Report 15175700 (Version 2)
Quarter: 2018Q3

REPORT INFORMATION
  Report Type: Report from Study
  Country: US (occurrence: US)
  Receive Date: 20180720
  Receipt Date: 20180830
  Transmission Date: 20181010
  Serious: Yes (Other)
  Sender: FDA-Public Use
  Company Number: US-TEVA-2018-US-928589

PATIENT
  Age: 41 Year
  Sex: Female

DRUGS (1)
  1. COPAXONE [Suspect]
     Active Substance: GLATIRAMER ACETATE
     Indication: MULTIPLE SCLEROSIS
     Route: 058
     Dates: start: 20180530

REACTIONS (9)
  - Injection site erythema [Recovering/Resolving]
  - Abdominal pain [Unknown]
  - Injection site warmth [Recovering/Resolving]
  - Injection site bruising [Not Recovered/Not Resolved]
  - Cellulitis [Recovering/Resolving]
  - Injection site swelling [Recovering/Resolving]
  - Pain in extremity [Unknown]
  - Dyskinesia [Unknown]
  - Tenderness [Unknown]

NARRATIVE: CASE EVENT DATE: 20180711
